FAERS Safety Report 6840906-7 (Version None)
Quarter: 2010Q3

REPORT INFORMATION
  Report Type: 
  Country: None (occurrence: None)
  Receive Date: 20100709
  Receipt Date: 20100701
  Transmission Date: 20110219
  Serious: Yes (Hospitalization)
  Sender: FDA-Public Use
  Company Number: 1000013154

PATIENT
  Age: 91 Year
  Sex: Female
  Weight: 56.36 kg

DRUGS (11)
  1. MEMANTINE [Suspect]
     Indication: DEMENTIA ALZHEIMER'S TYPE
     Dosage: 20 MG 910 MG, 2 IN 1 D), ORAL
     Route: 048
     Dates: start: 20080531, end: 20100322
  2. ARICEPT [Suspect]
     Dosage: (10 MG), ORAL
     Route: 048
     Dates: start: 20080120, end: 20100322
  3. ACTONEL [Concomitant]
  4. CELEBREX [Concomitant]
  5. HYDROXYUREA [Concomitant]
  6. LEVOTHYROXINE SODIUM [Concomitant]
  7. MVI WITH FOLIC ACID [Concomitant]
  8. ASPIRIN [Concomitant]
  9. VITAMIN B6 [Concomitant]
  10. EVISTA [Concomitant]
  11. SYNTHROID [Concomitant]

REACTIONS (22)
  - ASCITES [None]
  - BACK PAIN [None]
  - BILE DUCT OBSTRUCTION [None]
  - BLOOD CALCIUM DECREASED [None]
  - CANDIDA TEST POSITIVE [None]
  - CHOLELITHIASIS [None]
  - COLONIC OBSTRUCTION [None]
  - ENTEROCOCCAL BACTERAEMIA [None]
  - ENTEROCOCCUS TEST POSITIVE [None]
  - ERUCTATION [None]
  - HAEMOGLOBIN DECREASED [None]
  - ILEUS [None]
  - PANCREATIC NECROSIS [None]
  - PANCREATITIS [None]
  - PNEUMONIA [None]
  - PORTAL VEIN THROMBOSIS [None]
  - PSEUDOCYST [None]
  - SCAR [None]
  - SMALL INTESTINAL OBSTRUCTION [None]
  - URINARY TRACT INFECTION [None]
  - WOUND DRAINAGE [None]
  - WOUND INFECTION [None]
